FAERS Safety Report 23640983 (Version 1)
Quarter: 2024Q1

REPORT INFORMATION
  Report Type: Other
  Country: US (occurrence: None)
  Receive Date: 20240318
  Receipt Date: 20240318
  Transmission Date: 20240409
  Serious: Yes (Hospitalization)
  Sender: FDA-Public Use
  Company Number: US-ROCHE-3513362

PATIENT
  Age: 77 Year
  Sex: Female
  Weight: 69.008 kg

DRUGS (13)
  1. ESBRIET [Suspect]
     Active Substance: PIRFENIDONE
     Indication: Interstitial lung disease
     Dosage: 1 PILL 3 TIMES A DAY ;ONGOING: NO
     Route: 048
     Dates: start: 202303, end: 202303
  2. ESBRIET [Suspect]
     Active Substance: PIRFENIDONE
     Indication: Chronic respiratory failure
  3. ESBRIET [Suspect]
     Active Substance: PIRFENIDONE
     Indication: Obstructive sleep apnoea syndrome
  4. ESBRIET [Suspect]
     Active Substance: PIRFENIDONE
     Indication: Hypoxia
  5. ESBRIET [Suspect]
     Active Substance: PIRFENIDONE
     Indication: Interstitial lung disease
     Dosage: 3 PILLS 3 TIMES A DAY
     Route: 048
     Dates: start: 202304, end: 202304
  6. ESBRIET [Suspect]
     Active Substance: PIRFENIDONE
     Indication: Chronic respiratory failure
     Dosage: 2 PILLS 3 TIMES A DAY
     Route: 048
     Dates: start: 202305
  7. ESBRIET [Suspect]
     Active Substance: PIRFENIDONE
     Indication: Obstructive sleep apnoea syndrome
     Dosage: 3 PILLS 3 TIMES A DAY
     Route: 048
     Dates: end: 202401
  8. ESBRIET [Suspect]
     Active Substance: PIRFENIDONE
     Indication: Hypoxia
     Dosage: 2 PILLS 3 TIMES A DAY
     Route: 048
     Dates: start: 202303, end: 202303
  9. NORVASC [Concomitant]
     Active Substance: AMLODIPINE BESYLATE
  10. OSCAL [CALCIUM CARBONATE] [Concomitant]
  11. ADVAIR HFA [Concomitant]
     Active Substance: FLUTICASONE PROPIONATE\SALMETEROL XINAFOATE
  12. NEURONTIN [Concomitant]
     Active Substance: GABAPENTIN
  13. AVAPRO [Concomitant]
     Active Substance: IRBESARTAN

REACTIONS (6)
  - Hepatic function abnormal [Recovering/Resolving]
  - Nausea [Recovered/Resolved]
  - Decreased appetite [Recovered/Resolved]
  - Weight decreased [Recovered/Resolved]
  - Headache [Recovered/Resolved]
  - Off label use [Unknown]

NARRATIVE: CASE EVENT DATE: 20230401
